FAERS Safety Report 4574833-5 (Version None)
Quarter: 2005Q1

REPORT INFORMATION
  Report Type: 
  Country: None (occurrence: None)
  Receive Date: 20050208
  Receipt Date: 20040713
  Transmission Date: 20050727
  Serious: No
  Sender: FDA-Public Use
  Company Number: US-GLAXOSMITHKLINE-A0518074A

PATIENT
  Sex: Female

DRUGS (3)
  1. PAXIL CR [Suspect]
     Indication: PANIC DISORDER
     Dosage: 25MG PER DAY
     Route: 048
  2. ZOCOR [Concomitant]
  3. SYNTHROID [Concomitant]

REACTIONS (2)
  - WEIGHT INCREASED [None]
  - WEIGHT LOSS POOR [None]
